FAERS Safety Report 23469460 (Version 1)
Quarter: 2024Q1

REPORT INFORMATION
  Report Type: Spontaneous
  Country: JP (occurrence: JP)
  Receive Date: 20240202
  Receipt Date: 20240202
  Transmission Date: 20240410
  Serious: Yes (Death, Other)
  Sender: FDA-Public Use
  Company Number: JP-GENMAB-2024-00245

PATIENT
  Age: 9 Decade
  Sex: Female

DRUGS (1)
  1. EPKINLY [Suspect]
     Active Substance: EPCORITAMAB-BYSP
     Indication: High-grade B-cell lymphoma
     Dosage: UNK, SINGLE, CYCLE 1, DAY 1
     Route: 065
     Dates: start: 20240123, end: 20240123

REACTIONS (1)
  - High-grade B-cell lymphoma [Fatal]
